FAERS Safety Report 8795514 (Version 2)
Quarter: 2015Q1

REPORT INFORMATION
  Report Type: Report from Study
  Country: US (occurrence: US)
  Receive Date: 20120917
  Receipt Date: 20150330
  Transmission Date: 20150721
  Serious: Yes (Death)
  Sender: FDA-Public Use
  Company Number: US-ROCHE-1128010

PATIENT
  Age: 55 Year
  Sex: Male

DRUGS (9)
  1. AVASTIN [Suspect]
     Active Substance: BEVACIZUMAB
     Indication: THROMBOSIS
  2. AVASTIN [Suspect]
     Active Substance: BEVACIZUMAB
     Indication: EMBOLISM VENOUS
  3. VALIUM [Concomitant]
     Active Substance: DIAZEPAM
     Route: 065
  4. PROTONIX (UNITED STATES) [Concomitant]
     Route: 065
  5. AVASTIN [Suspect]
     Active Substance: BEVACIZUMAB
     Indication: BRAIN NEOPLASM MALIGNANT
     Route: 042
     Dates: start: 20081021
  6. IRINOTECAN [Concomitant]
     Active Substance: IRINOTECAN
     Route: 042
  7. TEMODAR [Concomitant]
     Active Substance: TEMOZOLOMIDE
  8. PALONOSETRON [Concomitant]
     Active Substance: PALONOSETRON
     Route: 065
  9. DECADRON [Concomitant]
     Active Substance: DEXAMETHASONE
     Route: 065

REACTIONS (5)
  - Vomiting [Recovered/Resolved]
  - Oral candidiasis [Unknown]
  - Malaise [Unknown]
  - Death [Fatal]
  - Muscle spasms [Recovered/Resolved]

NARRATIVE: CASE EVENT DATE: 20081110
